FAERS Safety Report 6330570-8 (Version None)
Quarter: 2009Q3

REPORT INFORMATION
  Report Type: 
  Country: None (occurrence: None)
  Receive Date: 20090827
  Receipt Date: 20090824
  Transmission Date: 20100115
  Serious: Yes (Other)
  Sender: FDA-Public Use
  Company Number: US-BRISTOL-MYERS SQUIBB COMPANY-14751598

PATIENT
  Age: 71 Year
  Sex: Male

DRUGS (2)
  1. ERBITUX [Suspect]
     Indication: HEAD AND NECK CANCER
     Dosage: ALSO GIVEN ON 22JUN09,29JUL09. INTRPTD ON 12AUG09.
     Dates: start: 20090609
  2. ABRAXANE [Suspect]
     Indication: HEAD AND NECK CANCER
     Dosage: ALSO GIVEN ON 22JUN09,29JUL09. INTRPTD ON 12AUG09.
     Route: 042
     Dates: start: 20090609

REACTIONS (10)
  - ATRIAL FIBRILLATION [None]
  - BUNDLE BRANCH BLOCK LEFT [None]
  - BUNDLE BRANCH BLOCK RIGHT [None]
  - CARDIAC VALVE DISEASE [None]
  - DILATATION VENTRICULAR [None]
  - ELECTROCARDIOGRAM T WAVE ABNORMAL [None]
  - LEFT VENTRICULAR DYSFUNCTION [None]
  - OEDEMA PERIPHERAL [None]
  - PULMONARY HYPERTENSION [None]
  - TRICUSPID VALVE INCOMPETENCE [None]
